FAERS Safety Report 9430698 (Version 1)
Quarter: 2013Q3

REPORT INFORMATION
  Report Type: Spontaneous
  Country: US (occurrence: US)
  Receive Date: 20130730
  Receipt Date: 20130730
  Transmission Date: 20140515
  Serious: No
  Sender: FDA-Public Use
  Company Number: US-ABBOTT-13P-163-1097380-00

PATIENT
  Age: 80 Year
  Sex: Female
  Weight: 90.8 kg

DRUGS (5)
  1. NIASPAN (COATED) [Suspect]
     Indication: BLOOD CHOLESTEROL INCREASED
     Dates: start: 201304
  2. SYNTHROID [Concomitant]
     Indication: HYPOTHYROIDISM
  3. SANCTURA [Concomitant]
     Indication: URINARY INCONTINENCE
  4. OXYTROL [Concomitant]
     Indication: URINARY INCONTINENCE
  5. FISH OIL [Concomitant]
     Indication: CARDIAC DISORDER

REACTIONS (2)
  - Rash macular [Not Recovered/Not Resolved]
  - Pruritus [Not Recovered/Not Resolved]
